FAERS Safety Report 19062675 (Version 2)
Quarter: 2021Q2

REPORT INFORMATION
  Report Type: Report from Study
  Country: FR (occurrence: FR)
  Receive Date: 20210326
  Receipt Date: 20210402
  Transmission Date: 20210717
  Serious: Yes (Death, Disabling, Other)
  Sender: FDA-Public Use
  Company Number: PHHY2019FR161719

PATIENT
  Age: 71 Year
  Sex: Male
  Weight: 90 kg

DRUGS (2)
  1. VOTRIENT [Suspect]
     Active Substance: PAZOPANIB HYDROCHLORIDE
     Indication: RENAL CANCER METASTATIC
     Dosage: 800 MG, QD
     Route: 048
     Dates: start: 20190128, end: 20191126
  2. VOTRIENT [Suspect]
     Active Substance: PAZOPANIB HYDROCHLORIDE
     Dosage: 600 MG, QD
     Route: 048

REACTIONS (16)
  - Clavicle fracture [Unknown]
  - Blood calcium increased [Unknown]
  - Arthralgia [Recovered/Resolved]
  - Diarrhoea [Recovered/Resolved]
  - Weight decreased [Recovered/Resolved]
  - Renal cancer metastatic [Fatal]
  - Malignant neoplasm progression [Fatal]
  - Musculoskeletal pain [Recovered/Resolved]
  - Neck pain [Unknown]
  - Pollakiuria [Unknown]
  - Fall [Unknown]
  - Dysgeusia [Recovered/Resolved]
  - Asthenia [Recovered/Resolved]
  - Constipation [Unknown]
  - Abdominal pain upper [Recovered/Resolved]
  - Hypertension [Recovered/Resolved]

NARRATIVE: CASE EVENT DATE: 20190130
